FAERS Safety Report 5132913-X (Version None)
Quarter: 2006Q4

REPORT INFORMATION
  Report Type: 
  Country: None (occurrence: None)
  Receive Date: 20061019
  Receipt Date: 20061019
  Transmission Date: 20070319
  Serious: No
  Sender: FDA-Public Use
  Company Number: None

PATIENT
  Age: 58 Year
  Sex: Male

DRUGS (1)
  1. LYRICA [Suspect]
     Indication: INTERVERTEBRAL DISC PROTRUSION
     Dosage: TID FOR PREVIOUS 7 DAYS

REACTIONS (2)
  - MUSCULAR WEAKNESS [None]
  - PSYCHOMOTOR SKILLS IMPAIRED [None]
